FAERS Safety Report 5322825-0 (Version None)
Quarter: 2007Q2

REPORT INFORMATION
  Report Type: 
  Country: None (occurrence: None)
  Receive Date: 20070511
  Receipt Date: 20070502
  Transmission Date: 20071010
  Serious: Yes (Other)
  Sender: FDA-Public Use
  Company Number: SE-PFIZER INC-2007035202

PATIENT
  Age: 66 Year
  Sex: Female

DRUGS (3)
  1. ALFADIL [Suspect]
     Route: 048
  2. METOPROLOL TARTRATE [Concomitant]
  3. PREDNISOLONE [Concomitant]

REACTIONS (2)
  - DRUG WITHDRAWAL SYNDROME [None]
  - VERTIGO [None]
